FAERS Safety Report 14689991 (Version 2)
Quarter: 2018Q2

REPORT INFORMATION
  Report Type: Spontaneous
  Country: US (occurrence: US)
  Receive Date: 20180328
  Receipt Date: 20180413
  Transmission Date: 20180711
  Serious: Yes (Other)
  Sender: FDA-Public Use
  Company Number: US-SAOL THERAPEUTICS-2018SAO00398

PATIENT
  Sex: Male

DRUGS (3)
  1. GABLOFEN [Suspect]
     Active Substance: BACLOFEN
     Dosage: 170 ^SOMETHING^ ?G/DAY
  2. GABLOFEN [Suspect]
     Active Substance: BACLOFEN
     Dosage: 300 ?G, \DAY
     Route: 037
  3. GABLOFEN [Suspect]
     Active Substance: BACLOFEN
     Dosage: 75 ?G, \DAY
     Route: 037

REACTIONS (6)
  - Bladder disorder [Recovered/Resolved]
  - Device dislocation [Not Recovered/Not Resolved]
  - Pudendal nerve terminal motor latency test abnormal [Recovered/Resolved]
  - Neuropathy peripheral [Recovered/Resolved]
  - Sexual dysfunction [Recovered/Resolved]
  - Implant site swelling [Not Recovered/Not Resolved]

NARRATIVE: CASE EVENT DATE: 2014
